FAERS Safety Report 7532407-8 (Version None)
Quarter: 2011Q2

REPORT INFORMATION
  Report Type: 
  Country: None (occurrence: None)
  Receive Date: 20110601
  Receipt Date: 20110524
  Transmission Date: 20111010
  Serious: Yes (Death)
  Sender: FDA-Public Use
  Company Number: SP03709

PATIENT
  Age: 53 Year
  Sex: Male

DRUGS (2)
  1. MOVIPREP [Suspect]
     Indication: BOWEL PREPARATION
     Dosage: ORAL
     Route: 048
     Dates: start: 20110101, end: 20110101
  2. COUMADIN [Concomitant]

REACTIONS (5)
  - FEELING ABNORMAL [None]
  - DIARRHOEA [None]
  - MUSCULAR WEAKNESS [None]
  - CARDIAC FAILURE CONGESTIVE [None]
  - DYSPHAGIA [None]
